FAERS Safety Report 13629244 (Version 1)
Quarter: 2017Q2

REPORT INFORMATION
  Report Type: Spontaneous
  Country: US (occurrence: US)
  Receive Date: 20170531
  Receipt Date: 20170531
  Transmission Date: 20170830
  Serious: No
  Sender: FDA-Public Use
  Company Number: US-ASTELLAS-1124212

PATIENT
  Sex: Female

DRUGS (1)
  1. TARCEVA [Suspect]
     Active Substance: ERLOTINIB HYDROCHLORIDE
     Indication: LUNG NEOPLASM MALIGNANT
     Route: 065

REACTIONS (9)
  - Rash [Recovering/Resolving]
  - Eructation [Recovering/Resolving]
  - Haemorrhoids [Recovering/Resolving]
  - Stomatitis [Recovering/Resolving]
  - Rhinorrhoea [Recovering/Resolving]
  - Constipation [Recovering/Resolving]
  - Tongue discomfort [Recovering/Resolving]
  - Diarrhoea [Recovering/Resolving]
  - Nausea [Recovering/Resolving]
